FAERS Safety Report 6851791-1 (Version None)
Quarter: 2010Q3

REPORT INFORMATION
  Report Type: 
  Country: None (occurrence: None)
  Receive Date: 20100717
  Receipt Date: 20071029
  Transmission Date: 20110219
  Serious: No
  Sender: FDA-Public Use
  Company Number: US-PFIZER INC-2007092612

PATIENT
  Sex: Female
  Weight: 59.09 kg

DRUGS (6)
  1. CHANTIX [Suspect]
     Indication: SMOKING CESSATION THERAPY
     Dates: start: 20071023
  2. ALL OTHER THERAPEUTIC PRODUCTS [Concomitant]
  3. TOPROL-XL [Concomitant]
  4. ZOCOR [Concomitant]
  5. VITAMIN D [Concomitant]
  6. CALCIUM [Concomitant]

REACTIONS (6)
  - ABDOMINAL DISTENSION [None]
  - CONSTIPATION [None]
  - FLATULENCE [None]
  - HEADACHE [None]
  - MALAISE [None]
  - NAUSEA [None]
